FAERS Safety Report 12235892 (Version 1)
Quarter: 2016Q2

REPORT INFORMATION
  Report Type: Report from Study
  Country: JP (occurrence: JP)
  Receive Date: 20160404
  Receipt Date: 20160404
  Transmission Date: 20160815
  Serious: Yes (Hospitalization, Other)
  Sender: FDA-Public Use
  Company Number: JP-GILEAD-2016-0205932

PATIENT
  Age: 55 Year
  Sex: Female
  Weight: 41.1 kg

DRUGS (10)
  1. AMBRISENTAN [Suspect]
     Active Substance: AMBRISENTAN
     Dosage: 2.5 MG, BID
     Route: 048
     Dates: start: 20110602, end: 20110605
  2. AMBRISENTAN [Suspect]
     Active Substance: AMBRISENTAN
     Dosage: 5 MG, BID
     Route: 048
     Dates: start: 20110614
  3. OMEPRAZOLE. [Concomitant]
     Active Substance: OMEPRAZOLE
     Indication: GASTRITIS PROPHYLAXIS
     Dosage: UNK
  4. FLOLAN [Suspect]
     Active Substance: EPOPROSTENOL SODIUM
     Indication: PULMONARY ARTERIAL HYPERTENSION
     Dosage: 50 NG/KG/MIN
     Route: 042
  5. SPIRONOLACTONE. [Concomitant]
     Active Substance: SPIRONOLACTONE
     Dosage: UNK
     Dates: start: 20110607
  6. AMBRISENTAN [Suspect]
     Active Substance: AMBRISENTAN
     Indication: PULMONARY ARTERIAL HYPERTENSION
     Dosage: 2.5 MG, QD
     Route: 048
     Dates: start: 20110531, end: 20110601
  7. ADCIRCA [Concomitant]
     Active Substance: TADALAFIL
     Indication: PULMONARY ARTERIAL HYPERTENSION
     Dosage: UNK
  8. AMBRISENTAN [Suspect]
     Active Substance: AMBRISENTAN
     Dosage: 2.5 MG, TID
     Route: 048
     Dates: start: 20110606, end: 20110613
  9. FLUITRAN [Concomitant]
     Active Substance: TRICHLORMETHIAZIDE
     Dosage: UNK
  10. LUPRAC [Concomitant]
     Active Substance: TORSEMIDE
     Dosage: UNK

REACTIONS (1)
  - Hyperthyroidism [Recovering/Resolving]

NARRATIVE: CASE EVENT DATE: 201202
